FAERS Safety Report 22116866 (Version 1)
Quarter: 2023Q1

REPORT INFORMATION
  Report Type: Spontaneous
  Country: PL (occurrence: PL)
  Receive Date: 20230320
  Receipt Date: 20230320
  Transmission Date: 20230418
  Serious: Yes (Hospitalization, Other)
  Sender: FDA-Public Use
  Company Number: PL-AMGEN-POLSP2023035891

PATIENT
  Age: 65 Year
  Sex: Male

DRUGS (4)
  1. FLUOROURACIL [Suspect]
     Active Substance: FLUOROURACIL
     Indication: Rectal cancer
     Dosage: UNK
     Route: 065
     Dates: start: 20220627
  2. LEUCOVORIN [Suspect]
     Active Substance: LEUCOVORIN
     Indication: Rectal cancer
     Dosage: UNK
     Route: 065
     Dates: start: 20220627
  3. VECTIBIX [Suspect]
     Active Substance: PANITUMUMAB
     Indication: Rectal cancer
     Dosage: UNK
     Route: 065
     Dates: start: 20220627
  4. IRINOTECAN HYDROCHLORIDE [Suspect]
     Active Substance: IRINOTECAN HYDROCHLORIDE
     Indication: Rectal cancer
     Dosage: UNK
     Route: 065
     Dates: start: 20220627

REACTIONS (3)
  - Pulmonary embolism [Unknown]
  - Escherichia pyelonephritis [Unknown]
  - Skin lesion [Unknown]

NARRATIVE: CASE EVENT DATE: 20221211
